FAERS Safety Report 24191329 (Version 1)
Quarter: 2024Q3

REPORT INFORMATION
  Report Type: Spontaneous
  Country: US (occurrence: US)
  Receive Date: 20240808
  Receipt Date: 20240808
  Transmission Date: 20241016
  Serious: No
  Sender: LUNDBECK
  Company Number: US-LUNDBECK-DKLU4001155

PATIENT

DRUGS (1)
  1. VYEPTI [Suspect]
     Active Substance: EPTINEZUMAB\EPTINEZUMAB-JJMR
     Indication: Migraine
     Dosage: FREQUENCY:Q12W - ONCE IN EVERY 12 WEEKS
     Route: 041
     Dates: start: 20240613

REACTIONS (5)
  - Therapeutic response delayed [Unknown]
  - Brain fog [Unknown]
  - Vision blurred [Unknown]
  - Neck pain [Unknown]
  - Back pain [Unknown]
